FAERS Safety Report 10143436 (Version 2)
Quarter: 2014Q2

REPORT INFORMATION
  Report Type: Report from Study
  Country: US (occurrence: US)
  Receive Date: 20140430
  Receipt Date: 20140603
  Transmission Date: 20141212
  Serious: Yes (Hospitalization)
  Sender: FDA-Public Use
  Company Number: US-VERTEX PHARMACEUTICALS INC-2014-002083

PATIENT
  Age: 15 Year
  Sex: Female

DRUGS (9)
  1. VX-770 [Suspect]
     Indication: CYSTIC FIBROSIS
     Dosage: 150 MG, BID
     Route: 048
     Dates: start: 20130205
  2. ALBUTEROL [Concomitant]
     Dosage: 2.5 MG, BID
     Route: 055
  3. BUDESONIDE W/FORMOTEROL [Concomitant]
     Dosage: 2 DF, BID
     Route: 055
  4. DORNASE ALFA [Concomitant]
     Dosage: 2.5 MG, QD
     Route: 055
  5. PANCRELIPASE [Concomitant]
     Dosage: 6 DF, UNK
     Route: 048
  6. ONDANSETRON [Concomitant]
     Dosage: 4 MG, TID
     Route: 048
  7. CHOLECALCIFEROL [Concomitant]
     Dosage: 2000 IU, BID
     Route: 048
  8. AQUADEKS [Concomitant]
     Dosage: 1 DF, QD
     Route: 048
  9. DIPHENHYDRAMINE [Concomitant]
     Indication: COUGH
     Dosage: 25 MG, PRN
     Route: 048

REACTIONS (2)
  - H1N1 influenza [Recovered/Resolved]
  - Nasopharyngitis [Recovered/Resolved]
